FAERS Safety Report 25337982 (Version 1)
Quarter: 2025Q2

REPORT INFORMATION
  Report Type: Spontaneous
  Country: ES (occurrence: ES)
  Receive Date: 20250520
  Receipt Date: 20250520
  Transmission Date: 20250716
  Serious: Yes (Hospitalization)
  Sender: GRIFOLS
  Company Number: ES-IGSA-BIG0035117

PATIENT
  Age: 76 Year
  Sex: Male

DRUGS (13)
  1. FLEBOGAMMA DIF [Suspect]
     Active Substance: HUMAN IMMUNOGLOBULIN G
     Indication: Secondary immunodeficiency
     Route: 065
     Dates: start: 20250213
  2. FLEBOGAMMA DIF [Suspect]
     Active Substance: HUMAN IMMUNOGLOBULIN G
     Dates: start: 20180319
  3. POLARAMINE [Concomitant]
     Active Substance: DEXCHLORPHENIRAMINE MALEATE
     Indication: Premedication
  4. ACETAMINOPHEN [Concomitant]
     Active Substance: ACETAMINOPHEN
     Indication: Premedication
     Route: 048
  5. ACETYLCYSTEINE [Concomitant]
     Active Substance: ACETYLCYSTEINE
  6. ALPROSTADIL [Concomitant]
     Active Substance: ALPROSTADIL
  7. SILDENAFIL [Concomitant]
     Active Substance: SILDENAFIL
  8. EBASTINE [Concomitant]
     Active Substance: EBASTINE
  9. TAMSULOSIN [Concomitant]
     Active Substance: TAMSULOSIN
  10. DUTASTERIDE [Concomitant]
     Active Substance: DUTASTERIDE
  11. EPLERENONE [Concomitant]
     Active Substance: EPLERENONE
  12. DOXAZOSIN [Concomitant]
     Active Substance: DOXAZOSIN MESYLATE
  13. FOLIC ACID [Concomitant]
     Active Substance: FOLIC ACID

REACTIONS (5)
  - Urticaria [Recovered/Resolved]
  - Oxygen saturation decreased [Recovered/Resolved]
  - Hypotension [Recovered/Resolved]
  - Arrhythmia [Recovered/Resolved]
  - Vomiting [Recovered/Resolved]

NARRATIVE: CASE EVENT DATE: 20250213
